FAERS Safety Report 5866140-5 (Version None)
Quarter: 2008Q3

REPORT INFORMATION
  Report Type: 
  Country: None (occurrence: None)
  Receive Date: 20080829
  Receipt Date: 20080821
  Transmission Date: 20090109
  Serious: Yes (Hospitalization, Disabling)
  Sender: FDA-Public Use
  Company Number: US-MERCK-0706USA03515

PATIENT
  Age: 42 Year
  Sex: Female

DRUGS (3)
  1. FOSAMAX [Suspect]
     Indication: OSTEOPOROSIS
     Route: 048
     Dates: start: 20040101, end: 20050601
  2. TOPAMAX [Concomitant]
     Indication: HEADACHE
     Route: 065
     Dates: start: 20010101
  3. SYNTHROID [Concomitant]
     Indication: THYROID DISORDER
     Route: 065
     Dates: start: 19680101

REACTIONS (11)
  - ANXIETY [None]
  - DENTAL NECROSIS [None]
  - DEPRESSION [None]
  - EAR INJURY [None]
  - INTESTINAL FUNCTIONAL DISORDER [None]
  - MIGRAINE [None]
  - ORAL DISORDER [None]
  - PAIN [None]
  - RESORPTION BONE INCREASED [None]
  - SWELLING [None]
  - TOOTH LOSS [None]
